FAERS Safety Report 6170512-1 (Version None)
Quarter: 2009Q2

REPORT INFORMATION
  Report Type: 
  Country: None (occurrence: None)
  Receive Date: 20090427
  Receipt Date: 20090427
  Transmission Date: 20091009
  Serious: Yes (Life-Threatening)
  Sender: FDA-Public Use
  Company Number: None

PATIENT
  Sex: Male
  Weight: 73.6 kg

DRUGS (12)
  1. PREDNISONE TAB [Suspect]
     Indication: IMMUNOSUPPRESSANT DRUG THERAPY
     Dosage: 20MG PO DAILY
     Route: 048
     Dates: start: 20081101, end: 20081230
  2. TACROLIMUS [Concomitant]
  3. ACYCLOVIR [Concomitant]
  4. BACTRIM [Concomitant]
  5. NYSTATIN [Concomitant]
  6. M.V.I. [Concomitant]
  7. RANITIDINE [Concomitant]
  8. ASPIRIN [Concomitant]
  9. CITALOPRAM HYDROBROMIDE [Concomitant]
  10. MMF [Concomitant]
  11. HYDROMORPHONE HCL [Concomitant]
  12. INSULIN ASPART [Concomitant]

REACTIONS (6)
  - HYPERSEXUALITY [None]
  - INSOMNIA [None]
  - IRRITABILITY [None]
  - PSYCHOTIC DISORDER [None]
  - SUICIDAL IDEATION [None]
  - UNEVALUABLE EVENT [None]
